FAERS Safety Report 22903218 (Version 2)
Quarter: 2024Q4

REPORT INFORMATION
  Report Type: Report from Study
  Country: CA (occurrence: CA)
  Receive Date: 20230905
  Receipt Date: 20241004
  Transmission Date: 20250115
  Serious: No
  Sender: ROCHE
  Company Number: CA-ROCHE-3415800

PATIENT
  Sex: Female

DRUGS (1)
  1. OCREVUS [Suspect]
     Active Substance: OCRELIZUMAB
     Indication: Relapsing-remitting multiple sclerosis
     Dosage: THEN 600 MG EVERY 6 MONTHS.
     Route: 042
     Dates: start: 20180223

REACTIONS (4)
  - Ear infection [Unknown]
  - Influenza [Unknown]
  - Decreased immune responsiveness [Unknown]
  - Mental impairment [Unknown]
